FAERS Safety Report 15474879 (Version 1)
Quarter: 2018Q4

REPORT INFORMATION
  Report Type: Spontaneous
  Country: IT (occurrence: IT)
  Receive Date: 20181008
  Receipt Date: 20181008
  Transmission Date: 20190205
  Serious: Yes (Life-Threatening)
  Sender: FDA-Public Use
  Company Number: IT-TEVA-2018-IT-961008

PATIENT
  Age: 66 Year
  Sex: Male

DRUGS (5)
  1. DECADRON [Concomitant]
     Active Substance: DEXAMETHASONE
     Route: 042
  2. CALCIO GLUCONATO [Concomitant]
     Active Substance: CALCIUM GLUCONATE
     Route: 042
  3. NAVOBAN [Concomitant]
     Active Substance: TROPISETRON HYDROCHLORIDE
     Route: 042
  4. OXALIPLATIN. [Suspect]
     Active Substance: OXALIPLATIN
     Route: 042
     Dates: start: 20080513, end: 20080513
  5. MAGNESIO SOLFATO [Concomitant]
     Route: 042

REACTIONS (3)
  - Loss of consciousness [Unknown]
  - Dyspnoea [Unknown]
  - Hypertensive crisis [Unknown]

NARRATIVE: CASE EVENT DATE: 20080513
